FAERS Safety Report 15339788 (Version 1)
Quarter: 2018Q3

REPORT INFORMATION
  Report Type: Spontaneous
  Country: AU (occurrence: AU)
  Receive Date: 20180831
  Receipt Date: 20180831
  Transmission Date: 20181010
  Serious: Yes (Hospitalization, Other)
  Sender: FDA-Public Use
  Company Number: PHHY2018AU082337

PATIENT
  Age: 47 Year
  Sex: Male
  Weight: 90 kg

DRUGS (7)
  1. HIDROCLOROTIAZIDA [Concomitant]
     Active Substance: HYDROCHLOROTHIAZIDE
     Indication: HYPERTENSION
     Dosage: 25 MG, QD
     Route: 065
  2. PERINDOPRIL [Concomitant]
     Active Substance: PERINDOPRIL
     Indication: PRODUCT USED FOR UNKNOWN INDICATION
     Dosage: 4 MG, UNK(OM)
     Route: 065
  3. PAZOPANIB [Suspect]
     Active Substance: PAZOPANIB
     Dosage: 600 UNK, UNK
     Route: 065
     Dates: start: 201610
  4. PAZOPANIB [Suspect]
     Active Substance: PAZOPANIB
     Indication: METASTATIC RENAL CELL CARCINOMA
     Dosage: 800 MG, QD
     Route: 065
     Dates: start: 201601
  5. PAZOPANIB [Suspect]
     Active Substance: PAZOPANIB
     Dosage: 400 UNK, UNK
  6. GLIBENCLAMIDE [Concomitant]
     Active Substance: GLYBURIDE
     Indication: DIABETES MELLITUS
     Dosage: 2.5 MG, BID
     Route: 065
  7. PAZOPANIB [Suspect]
     Active Substance: PAZOPANIB
     Dosage: 600 UNK, UNK
     Dates: start: 201706

REACTIONS (16)
  - Cough [Recovering/Resolving]
  - Dry skin [Unknown]
  - Central nervous system lesion [Unknown]
  - Pain [Unknown]
  - Myocardial infarction [Unknown]
  - Decreased appetite [Unknown]
  - Metastases to liver [Unknown]
  - Dizziness [Unknown]
  - Drug tolerance [Unknown]
  - Blood pressure increased [Unknown]
  - Metastases to central nervous system [Unknown]
  - Constipation [Unknown]
  - Headache [Recovered/Resolved]
  - Chest pain [Unknown]
  - Brain oedema [Unknown]
  - Renal mass [Unknown]

NARRATIVE: CASE EVENT DATE: 20160603
